FAERS Safety Report 12327565 (Version 1)
Quarter: 2016Q2

REPORT INFORMATION
  Report Type: Spontaneous
  Country: FR (occurrence: FR)
  Receive Date: 20160503
  Receipt Date: 20160503
  Transmission Date: 20160815
  Serious: Yes (Other)
  Sender: FDA-Public Use
  Company Number: FR-ROCHE-1750249

PATIENT
  Age: 54 Year
  Sex: Male

DRUGS (7)
  1. AVASTIN [Suspect]
     Active Substance: BEVACIZUMAB
     Indication: GLIOBLASTOMA
     Route: 065
     Dates: end: 20160225
  2. KEPPRA [Concomitant]
     Active Substance: LEVETIRACETAM
  3. TEMODAL [Suspect]
     Active Substance: TEMOZOLOMIDE
     Indication: ANAPLASTIC ASTROCYTOMA
     Route: 065
     Dates: start: 201502, end: 201507
  4. DULOXETINE. [Concomitant]
     Active Substance: DULOXETINE
  5. VIMPAT [Concomitant]
     Active Substance: LACOSAMIDE
  6. IRINOTECAN [Suspect]
     Active Substance: IRINOTECAN
     Indication: GLIOBLASTOMA
     Route: 065
     Dates: end: 20160225
  7. PRAZEPAM [Concomitant]
     Active Substance: PRAZEPAM

REACTIONS (2)
  - Fingerprint loss [Unknown]
  - Peripheral swelling [Unknown]

NARRATIVE: CASE EVENT DATE: 20160225
